FAERS Safety Report 8862128 (Version 1)
Quarter: 2012Q4

REPORT INFORMATION
  Report Type: 
  Country: DK (occurrence: DK)
  Receive Date: 20121026
  Receipt Date: 20121026
  Transmission Date: 20130627
  Serious: Yes (Other)
  Sender: FDA-Public Use
  Company Number: DK-ELI_LILLY_AND_COMPANY-DK201210005613

PATIENT
  Age: 0 Year

DRUGS (1)
  1. FONTEX [Suspect]
     Indication: DEPRESSION
     Dosage: UNK, unknown
     Route: 064
     Dates: start: 200206

REACTIONS (7)
  - Brain malformation [Unknown]
  - Developmental delay [Not Recovered/Not Resolved]
  - Mental retardation [Not Recovered/Not Resolved]
  - Drug withdrawal syndrome neonatal [Unknown]
  - Hypertonia [Unknown]
  - Agitation neonatal [Unknown]
  - Foetal exposure during pregnancy [Recovered/Resolved]
